FAERS Safety Report 8239081-6 (Version None)
Quarter: 2012Q1

REPORT INFORMATION
  Report Type: 
  Country: None (occurrence: None)
  Receive Date: 20120327
  Receipt Date: 20120320
  Transmission Date: 20120608
  Serious: Yes (Life-Threatening, Other)
  Sender: FDA-Public Use
  Company Number: CHPA2012US005430

PATIENT
  Age: 82 Year
  Sex: Female

DRUGS (3)
  1. SULFAMETHOXAZOLE [Suspect]
     Indication: COLITIS ULCERATIVE
     Dosage: UNK, UNK
     Route: 065
  2. DRUG THERAPY NOS [Suspect]
     Dosage: UNK, UNK
  3. EXCEDRIN TENSION HEADACHE CAPLETS [Suspect]
     Indication: PAIN
     Dosage: 1 DF, QD
     Route: 048
     Dates: start: 19970101

REACTIONS (13)
  - MALAISE [None]
  - ARTHRITIS [None]
  - DYSPNOEA [None]
  - NAUSEA [None]
  - ABDOMINAL DISCOMFORT [None]
  - UNDERDOSE [None]
  - DIZZINESS [None]
  - SINUSITIS [None]
  - COLITIS ULCERATIVE [None]
  - EYE PAIN [None]
  - ABDOMINAL PAIN UPPER [None]
  - LACRIMATION INCREASED [None]
  - HEADACHE [None]
